FAERS Safety Report 15390863 (Version 3)
Quarter: 2019Q4

REPORT INFORMATION
  Report Type: Report from Study
  Country: US (occurrence: US)
  Receive Date: 20180917
  Receipt Date: 20191227
  Transmission Date: 20200122
  Serious: No
  Sender: FDA-Public Use
  Company Number: US-SA-2018SA061074

PATIENT
  Age: 50 Year
  Sex: Female

DRUGS (9)
  1. NEURONTIN [Concomitant]
     Active Substance: GABAPENTIN
     Dosage: 600 MG,TID
     Route: 048
  2. HYDROCHLOROTHIAZIDE. [Concomitant]
     Active Substance: HYDROCHLOROTHIAZIDE
     Dosage: 12.5 MG,QD
     Route: 048
     Dates: start: 20110912
  3. TECFIDERA [Concomitant]
     Active Substance: DIMETHYL FUMARATE
  4. LIPITOR [Concomitant]
     Active Substance: ATORVASTATIN CALCIUM
     Dosage: 20 MG,QPM
     Route: 048
     Dates: start: 20110912
  5. VITAMINS NOS [Concomitant]
     Active Substance: VITAMINS
     Dosage: 1 DF, QD
     Route: 048
     Dates: start: 20110912
  6. TERIFLUNOMIDE. [Suspect]
     Active Substance: TERIFLUNOMIDE
     Dosage: 7 MG, QD
     Route: 048
     Dates: start: 20180821, end: 20180829
  7. VASOTEC [Concomitant]
     Active Substance: ENALAPRIL MALEATE
     Dosage: 5 MG,QD
     Route: 048
     Dates: start: 20110912
  8. ASPIRIN [ACETYLSALICYLIC ACID] [Concomitant]
     Active Substance: ASPIRIN
     Dosage: 81 MG,QD
     Route: 048
     Dates: start: 20110912
  9. TERIFLUNOMIDE. [Suspect]
     Active Substance: TERIFLUNOMIDE
     Indication: MULTIPLE SCLEROSIS
     Dosage: 7 MG, QD
     Route: 048
     Dates: start: 20180713, end: 201808

REACTIONS (8)
  - Eye pain [Recovering/Resolving]
  - Joint lock [Unknown]
  - Pain [Unknown]
  - Sciatica [Unknown]
  - Limb discomfort [Unknown]
  - Fatigue [Unknown]
  - Arthralgia [Unknown]
  - Drug intolerance [Unknown]
